FAERS Safety Report 5802435-9 (Version None)
Quarter: 2008Q3

REPORT INFORMATION
  Report Type: 
  Country: None (occurrence: None)
  Receive Date: 20080708
  Receipt Date: 20080701
  Transmission Date: 20090109
  Serious: Yes (Other)
  Sender: FDA-Public Use
  Company Number: US-BAYER-200717146NA

PATIENT
  Age: 25 Year
  Sex: Female
  Weight: 56 kg

DRUGS (2)
  1. MIRENA [Suspect]
     Indication: CONTRACEPTION
     Route: 015
     Dates: start: 20071126, end: 20071228
  2. VITAMIN TAB [Concomitant]

REACTIONS (7)
  - BACK PAIN [None]
  - INTRA-UTERINE CONTRACEPTIVE DEVICE EXPELLED [None]
  - IUCD COMPLICATION [None]
  - IUD MIGRATION [None]
  - MICTURITION URGENCY [None]
  - RESIDUAL URINE [None]
  - UTERINE RUPTURE [None]
